FAERS Safety Report 5163724-7 (Version None)
Quarter: 2006Q4

REPORT INFORMATION
  Report Type: 
  Country: None (occurrence: None)
  Receive Date: 20061204
  Receipt Date: 20061127
  Transmission Date: 20070319
  Serious: Yes (Hospitalization)
  Sender: FDA-Public Use
  Company Number: FR-GLAXOSMITHKLINE-B0448750A

PATIENT
  Age: 11 Year
  Sex: Female

DRUGS (5)
  1. AUGMENTIN '125' [Suspect]
     Indication: BRONCHITIS
     Route: 065
     Dates: start: 20060220, end: 20060225
  2. DOLIPRANE [Concomitant]
     Route: 065
     Dates: start: 20060303, end: 20060306
  3. ZADITEN [Concomitant]
     Route: 065
     Dates: start: 20060303, end: 20060306
  4. ORBENIN CAP [Concomitant]
     Route: 065
     Dates: start: 20060303, end: 20060306
  5. ZOVIRAX [Concomitant]
     Route: 065
     Dates: start: 20060305, end: 20060306

REACTIONS (6)
  - ACUTE GENERALISED EXANTHEMATOUS PUSTULOSIS [None]
  - PRURITUS [None]
  - PYREXIA [None]
  - RASH PUSTULAR [None]
  - SKIN EXFOLIATION [None]
  - SKIN LESION [None]
